FAERS Safety Report 25828321 (Version 2)
Quarter: 2025Q4

REPORT INFORMATION
  Report Type: Report from Study
  Country: EG (occurrence: EG)
  Receive Date: 20250921
  Receipt Date: 20251009
  Transmission Date: 20260117
  Serious: No
  Sender: SANDOZ
  Company Number: EG-SANDOZ-SDZ2025EG068439

PATIENT
  Sex: Male

DRUGS (1)
  1. OMNITROPE [Suspect]
     Active Substance: SOMATROPIN
     Indication: Growth hormone deficiency
     Dosage: STRENGTH 10 MG
     Route: 058
     Dates: start: 20220607, end: 2025

REACTIONS (4)
  - Circumstance or information capable of leading to device use error [Unknown]
  - Expired device used [Unknown]
  - Therapy cessation [Unknown]
  - Device difficult to use [Unknown]

NARRATIVE: CASE EVENT DATE: 20250101
